FAERS Safety Report 7762832-1 (Version None)
Quarter: 2011Q3

REPORT INFORMATION
  Report Type: 
  Country: None (occurrence: None)
  Receive Date: 20110920
  Receipt Date: 20110916
  Transmission Date: 20111222
  Serious: Yes (Hospitalization)
  Sender: FDA-Public Use
  Company Number: SE-MERCK-1109SWE00012

PATIENT
  Age: 86 Year
  Sex: Female

DRUGS (10)
  1. POLYSACCHARIDE IRON COMPLEX [Suspect]
     Route: 048
     Dates: start: 20110802, end: 20110805
  2. CYANOCOBALAMIN AND FOLIC ACID AND PYRIDOXINE HYDROCHLORIDE [Concomitant]
     Route: 065
  3. ASCORBIC ACID AND CALCIUM CARBONATE AND CHOLECALCIFEROL AND PYRIDOXINE [Concomitant]
     Route: 048
  4. FOSAMAX [Suspect]
     Route: 048
     Dates: start: 20080810, end: 20110803
  5. BISOPROLOL FUMARATE [Suspect]
     Route: 048
     Dates: start: 20080814, end: 20110803
  6. MIANSERIN HYDROCHLORIDE [Suspect]
     Route: 048
     Dates: start: 20080810, end: 20110802
  7. NITROFURANTOIN [Suspect]
     Route: 048
     Dates: start: 20110802, end: 20110803
  8. LEVOTHYROXINE SODIUM [Concomitant]
     Route: 065
  9. SIMVASTATIN [Suspect]
     Route: 048
     Dates: start: 20080814, end: 20110802
  10. LITHIUM SULFATE [Concomitant]
     Route: 048

REACTIONS (3)
  - GENERAL PHYSICAL HEALTH DETERIORATION [None]
  - MENTAL DISORDER [None]
  - BEDRIDDEN [None]
